FAERS Safety Report 12654627 (Version 5)
Quarter: 2016Q4

REPORT INFORMATION
  Report Type: Report from Study
  Country: MX (occurrence: MX)
  Receive Date: 20160816
  Receipt Date: 20161213
  Transmission Date: 20170207
  Serious: Yes (Hospitalization)
  Sender: FDA-Public Use
  Company Number: MX-ROCHE-1626036

PATIENT
  Age: 54 Year
  Sex: Female
  Weight: 54.5 kg

DRUGS (21)
  1. ROACTEMRA [Suspect]
     Active Substance: TOCILIZUMAB
     Route: 042
  2. FOSAMAX [Concomitant]
     Active Substance: ALENDRONATE SODIUM
     Indication: OSTEOPENIA
     Route: 048
     Dates: start: 201403, end: 201512
  3. ROACTEMRA [Suspect]
     Active Substance: TOCILIZUMAB
     Indication: RHEUMATOID ARTHRITIS
     Route: 042
     Dates: start: 20131201
  4. ROACTEMRA [Suspect]
     Active Substance: TOCILIZUMAB
     Dosage: LAST DOSE WAS ADMINISTERED ON 06/JUN/2016
     Route: 042
     Dates: start: 20160301
  5. VYTORIN [Concomitant]
     Active Substance: EZETIMIBE\SIMVASTATIN
     Indication: BLOOD CHOLESTEROL
     Route: 048
     Dates: start: 2001
  6. ROACTEMRA [Suspect]
     Active Substance: TOCILIZUMAB
     Route: 042
     Dates: start: 20151117
  7. ROACTEMRA [Suspect]
     Active Substance: TOCILIZUMAB
     Route: 042
  8. CORTISONE [Suspect]
     Active Substance: CORTISONE\HYDROCORTISONE
     Indication: PRODUCT USED FOR UNKNOWN INDICATION
     Route: 065
  9. ROACTEMRA [Suspect]
     Active Substance: TOCILIZUMAB
     Route: 042
  10. ROACTEMRA [Suspect]
     Active Substance: TOCILIZUMAB
     Route: 042
  11. ROACTEMRA [Suspect]
     Active Substance: TOCILIZUMAB
     Route: 042
  12. ROACTEMRA [Suspect]
     Active Substance: TOCILIZUMAB
     Dosage: LAST DOSE OF TOCILIZUMAB, PRIOR TO ACHING PAIN IN HANDS, PAIN AND TIREDNESS: 03 JUL 2015
     Route: 042
     Dates: start: 20150514
  13. ROACTEMRA [Suspect]
     Active Substance: TOCILIZUMAB
     Route: 042
     Dates: start: 201312, end: 201405
  14. PROLIA [Concomitant]
     Active Substance: DENOSUMAB
     Indication: OSTEOPENIA
     Route: 058
     Dates: start: 201512
  15. ROACTEMRA [Suspect]
     Active Substance: TOCILIZUMAB
     Route: 042
     Dates: start: 201411, end: 201506
  16. ROACTEMRA [Suspect]
     Active Substance: TOCILIZUMAB
     Route: 042
     Dates: start: 20150718
  17. ROACTEMRA [Suspect]
     Active Substance: TOCILIZUMAB
     Route: 042
     Dates: start: 201405, end: 201411
  18. NOVOTIRAL [Concomitant]
     Active Substance: LEVOTHYROXINE
     Indication: HYPOTHYROIDISM
     Route: 048
     Dates: start: 2005
  19. EUTIROX [Concomitant]
     Active Substance: LEVOTHYROXINE SODIUM
     Indication: HYPOTHYROIDISM
     Route: 048
     Dates: start: 2005
  20. ROACTEMRA [Suspect]
     Active Substance: TOCILIZUMAB
     Route: 042
     Dates: start: 201506, end: 20160301
  21. VALMETROL-3 [Concomitant]
     Indication: OSTEOPENIA
     Route: 048
     Dates: start: 2014

REACTIONS (27)
  - Diarrhoea [Recovered/Resolved]
  - Depression [Recovered/Resolved]
  - Feeling of despair [Recovered/Resolved]
  - Fatigue [Not Recovered/Not Resolved]
  - Fibromyalgia [Recovered/Resolved]
  - Tension [Not Recovered/Not Resolved]
  - Blood cholesterol increased [Recovering/Resolving]
  - Joint crepitation [Recovered/Resolved]
  - Pain in extremity [Recovering/Resolving]
  - Musculoskeletal stiffness [Recovered/Resolved]
  - Back pain [Not Recovered/Not Resolved]
  - Myalgia [Not Recovered/Not Resolved]
  - Depressed mood [Recovered/Resolved]
  - Transaminases increased [Not Recovered/Not Resolved]
  - Fatigue [Recovered/Resolved]
  - Anxiety [Recovered/Resolved]
  - Plantar fasciitis [Not Recovered/Not Resolved]
  - Cough [Not Recovered/Not Resolved]
  - Pain [Recovered/Resolved]
  - Memory impairment [Recovered/Resolved]
  - Insomnia [Recovered/Resolved]
  - Hunger [Recovered/Resolved]
  - Autoimmune hepatitis [Not Recovered/Not Resolved]
  - Arthralgia [Recovering/Resolving]
  - Intentional product misuse [Unknown]
  - Muscle rigidity [Recovered/Resolved]
  - Weight increased [Recovering/Resolving]

NARRATIVE: CASE EVENT DATE: 2015
